FAERS Safety Report 6611780-9 (Version None)
Quarter: 2010Q1

REPORT INFORMATION
  Report Type: 
  Country: None (occurrence: None)
  Receive Date: 20100303
  Receipt Date: 20100225
  Transmission Date: 20100710
  Serious: Yes (Hospitalization)
  Sender: FDA-Public Use
  Company Number: FR-ROCHE-680648

PATIENT
  Sex: Male

DRUGS (3)
  1. MYCOPHENOLATE MOFETIL [Suspect]
     Route: 048
     Dates: start: 20070405
  2. BELATACEPT [Suspect]
     Dosage: LESS INTENSIVE DOSING REGIMEN
     Route: 042
     Dates: start: 20070405
  3. CORTANCYL [Suspect]
     Route: 048
     Dates: start: 20090408

REACTIONS (2)
  - LUNG NEOPLASM MALIGNANT [None]
  - PLEURAL EFFUSION [None]
